FAERS Safety Report 21800728 (Version 1)
Quarter: 2022Q4

REPORT INFORMATION
  Report Type: Report from Study
  Country: DE (occurrence: DE)
  Receive Date: 20221230
  Receipt Date: 20221230
  Transmission Date: 20230113
  Serious: Yes (Hospitalization)
  Sender: FDA-Public Use
  Company Number: DE-002147023-NVSC2022DE297253

PATIENT
  Age: 1 Year
  Sex: Male
  Weight: 7.5 kg

DRUGS (1)
  1. TRAMETINIB [Suspect]
     Active Substance: TRAMETINIB
     Indication: Neurofibroma
     Dosage: 0.25 MG
     Route: 048
     Dates: start: 20211217

REACTIONS (2)
  - Ulcerative keratitis [Recovering/Resolving]
  - Impaired healing [Unknown]

NARRATIVE: CASE EVENT DATE: 20221220
